FAERS Safety Report 16587701 (Version 5)
Quarter: 2021Q3

REPORT INFORMATION
  Report Type: Spontaneous
  Country: US (occurrence: US)
  Receive Date: 20190717
  Receipt Date: 20210813
  Transmission Date: 20211014
  Serious: Yes (Other)
  Sender: FDA-Public Use
  Company Number: US-GLAXOSMITHKLINE-US2019GSK127598

PATIENT
  Age: 59 Year
  Sex: Female

DRUGS (9)
  1. PROTONIX [Suspect]
     Active Substance: PANTOPRAZOLE SODIUM
     Indication: GASTROOESOPHAGEAL REFLUX DISEASE
     Dosage: 40 MG, BID
     Route: 065
     Dates: start: 20100717, end: 20100724
  2. PANTOPRAZOLE [Suspect]
     Active Substance: PANTOPRAZOLE
     Indication: GASTROOESOPHAGEAL REFLUX DISEASE
     Dosage: 40 MG, QD
     Route: 065
     Dates: start: 20100717, end: 201107
  3. OMEPRAZOLE. [Suspect]
     Active Substance: OMEPRAZOLE
     Indication: GASTROOESOPHAGEAL REFLUX DISEASE
     Dosage: 40 MG, QD
     Route: 048
  4. PREVACID 24 HR [Suspect]
     Active Substance: LANSOPRAZOLE
     Indication: GASTROOESOPHAGEAL REFLUX DISEASE
     Dosage: 15 MG, QD
     Route: 048
     Dates: start: 2009, end: 2010
  5. PRILOSEC [Suspect]
     Active Substance: OMEPRAZOLE MAGNESIUM
     Indication: DYSPEPSIA
     Dosage: 40 MG, QD
     Route: 065
     Dates: start: 20100717, end: 20100724
  6. PRILOSEC [Suspect]
     Active Substance: OMEPRAZOLE MAGNESIUM
     Dosage: 20 MG, BID
     Route: 065
     Dates: start: 20130129, end: 20130129
  7. ZANTAC [Suspect]
     Active Substance: RANITIDINE HYDROCHLORIDE
     Indication: GASTRIC DISORDER
     Dosage: 150 MG, BID
     Route: 065
  8. PROTONIX [Suspect]
     Active Substance: PANTOPRAZOLE SODIUM
     Dosage: UNKNOWN
     Route: 042
     Dates: start: 20100719, end: 20100719
  9. PRILOSEC [Suspect]
     Active Substance: OMEPRAZOLE MAGNESIUM
     Dosage: 40 MG, QD
     Route: 065
     Dates: start: 201107, end: 20130129

REACTIONS (15)
  - Renal failure [Unknown]
  - Renal tubular necrosis [Unknown]
  - Micturition urgency [Unknown]
  - Chronic kidney disease [Unknown]
  - Renal injury [Unknown]
  - Renal cyst [Unknown]
  - Tubulointerstitial nephritis [Unknown]
  - Nephrogenic anaemia [Unknown]
  - Haematuria [Unknown]
  - Renal disorder [Unknown]
  - Pollakiuria [Unknown]
  - Acute kidney injury [Unknown]
  - Renal impairment [Unknown]
  - Urinary incontinence [Unknown]
  - Dysuria [Unknown]

NARRATIVE: CASE EVENT DATE: 201006
